FAERS Safety Report 7235455-0 (Version None)
Quarter: 2011Q1

REPORT INFORMATION
  Report Type: 
  Country: None (occurrence: None)
  Receive Date: 20110114
  Receipt Date: 20110114
  Transmission Date: 20110831
  Serious: No
  Sender: FDA-Public Use
  Company Number: None

PATIENT
  Age: 66 Year
  Sex: Male
  Weight: 117.9352 kg

DRUGS (2)
  1. RIFAMPIN [Suspect]
     Indication: MEDICAL DEVICE IMPLANTATION
     Dosage: 300 MG QD PO
     Route: 048
     Dates: start: 20081031, end: 20090115
  2. RIFAMPIN [Suspect]
     Indication: WOUND INFECTION
     Dosage: 300 MG QD PO
     Route: 048
     Dates: start: 20081031, end: 20090115

REACTIONS (6)
  - ASTHENIA [None]
  - DECREASED APPETITE [None]
  - CHROMATURIA [None]
  - WHEEZING [None]
  - ARTHRALGIA [None]
  - RHEUMATOID ARTHRITIS [None]
